FAERS Safety Report 20323712 (Version 1)
Quarter: 2022Q1

REPORT INFORMATION
  Report Type: Report from Study
  Country: CA (occurrence: CA)
  Receive Date: 20220111
  Receipt Date: 20220111
  Transmission Date: 20220423
  Serious: Yes (Death, Hospitalization, Other)
  Sender: FDA-Public Use
  Company Number: CA-PFIZER INC-202200019550

PATIENT
  Age: 76 Year
  Sex: Male
  Weight: 70 kg

DRUGS (13)
  1. AXITINIB [Suspect]
     Active Substance: AXITINIB
     Route: 065
  2. PEMBROLIZUMAB [Suspect]
     Active Substance: PEMBROLIZUMAB
     Indication: Metastatic renal cell carcinoma
     Dosage: 200 MG, EVERY 3 WEEKS
     Route: 042
  3. PEMBROLIZUMAB [Suspect]
     Active Substance: PEMBROLIZUMAB
     Indication: Metastatic renal cell carcinoma
     Dosage: 200 MG, EVERY 3 WEEKS
     Route: 065
  4. PEMBROLIZUMAB [Suspect]
     Active Substance: PEMBROLIZUMAB
     Dosage: 200 MG, EVERY 3 WEEKS
     Route: 065
  5. PEMBROLIZUMAB [Suspect]
     Active Substance: PEMBROLIZUMAB
     Dosage: 200 MG, EVERY 3 WEEKS
     Route: 065
  6. PEMBROLIZUMAB [Suspect]
     Active Substance: PEMBROLIZUMAB
     Dosage: 200 MG, EVERY 3 WEEKS
     Route: 065
  7. PEMBROLIZUMAB [Suspect]
     Active Substance: PEMBROLIZUMAB
     Dosage: 200 MG, EVERY 3 WEEKS
     Route: 065
  8. PEMBROLIZUMAB [Suspect]
     Active Substance: PEMBROLIZUMAB
     Dosage: 200 MG, EVERY 3 WEEKS
     Route: 065
  9. PEMBROLIZUMAB [Suspect]
     Active Substance: PEMBROLIZUMAB
     Dosage: 200 MG, EVERY 3 WEEKS
     Route: 065
  10. PEMBROLIZUMAB [Suspect]
     Active Substance: PEMBROLIZUMAB
     Dosage: 200 MG, EVERY 3 WEEKS
     Route: 065
  11. PEMBROLIZUMAB [Suspect]
     Active Substance: PEMBROLIZUMAB
     Dosage: 200 MG, EVERY 3 WEEKS
     Route: 065
  12. PEMBROLIZUMAB [Suspect]
     Active Substance: PEMBROLIZUMAB
     Dosage: 200 MG, EVERY 3 WEEKS
     Route: 065
  13. PEMBROLIZUMAB [Suspect]
     Active Substance: PEMBROLIZUMAB
     Dosage: 200 MG, EVERY 3 WEEKS
     Route: 065

REACTIONS (29)
  - Adverse event [Fatal]
  - Anger [Fatal]
  - Anxiety [Fatal]
  - Back pain [Fatal]
  - Blood pressure abnormal [Fatal]
  - Blood pressure increased [Fatal]
  - Central venous catheterisation [Fatal]
  - Decreased appetite [Fatal]
  - Dehydration [Fatal]
  - Depressed mood [Fatal]
  - Depression [Fatal]
  - Disturbance in attention [Fatal]
  - Dyspnoea [Fatal]
  - Fatigue [Fatal]
  - Frustration tolerance decreased [Fatal]
  - General physical condition abnormal [Fatal]
  - Malaise [Fatal]
  - Memory impairment [Fatal]
  - Nausea [Fatal]
  - Pain [Fatal]
  - Pneumonia [Fatal]
  - Post procedural complication [Fatal]
  - Procedural complication [Fatal]
  - Pulse abnormal [Fatal]
  - Sleep disorder [Fatal]
  - Somnolence [Fatal]
  - Surgery [Fatal]
  - Weight abnormal [Fatal]
  - Weight decreased [Fatal]
